FAERS Safety Report 16580267 (Version 1)
Quarter: 2019Q3

REPORT INFORMATION
  Report Type: Report from Study
  Country: GB (occurrence: GB)
  Receive Date: 20190716
  Receipt Date: 20190716
  Transmission Date: 20191004
  Serious: Yes (Hospitalization)
  Sender: FDA-Public Use
  Company Number: GB-MYLANLABS-2019M1067027

PATIENT
  Sex: Male

DRUGS (1)
  1. BRABIO, SOLUTION FOR INJECTION [Suspect]
     Active Substance: GLATIRAMER ACETATE
     Indication: MULTIPLE SCLEROSIS
     Dosage: 40 MILLIGRAM, 3XW
     Route: 058
     Dates: start: 20180808

REACTIONS (3)
  - Urinary tract infection [Unknown]
  - Fall [Unknown]
  - Product dose omission [Unknown]
